FAERS Safety Report 6725553-X (Version None)
Quarter: 2010Q2

REPORT INFORMATION
  Report Type: 
  Country: None (occurrence: None)
  Receive Date: 20100514
  Receipt Date: 20100504
  Transmission Date: 20101027
  Serious: Yes (Other)
  Sender: FDA-Public Use
  Company Number: US-PFIZER INC-2010056766

PATIENT

DRUGS (1)
  1. CHANTIX [Suspect]
     Dosage: UNK

REACTIONS (13)
  - ANXIETY [None]
  - ASTHENIA [None]
  - CHEST DISCOMFORT [None]
  - CHEST PAIN [None]
  - CHOKING [None]
  - CONVULSION [None]
  - COUGH [None]
  - CYANOSIS [None]
  - DYSPNOEA [None]
  - HALLUCINATION, AUDITORY [None]
  - MALAISE [None]
  - PSYCHOTIC DISORDER [None]
  - UNRESPONSIVE TO STIMULI [None]
